FAERS Safety Report 20725474 (Version 1)
Quarter: 2022Q2

REPORT INFORMATION
  Report Type: Spontaneous
  Country: US (occurrence: US)
  Receive Date: 20220419
  Receipt Date: 20220419
  Transmission Date: 20220720
  Serious: Yes (Other)
  Sender: FDA-Public Use
  Company Number: US-BRISTOL-MYERS SQUIBB COMPANY-2022-019433

PATIENT
  Sex: Male

DRUGS (1)
  1. POMALYST [Suspect]
     Active Substance: POMALIDOMIDE
     Indication: Neoplasm malignant
     Dosage: 21 DAYS ON AND 7 DAYS OFF
     Route: 048
     Dates: start: 201908

REACTIONS (2)
  - Drug ineffective [Unknown]
  - Malignant neoplasm progression [Unknown]
